FAERS Safety Report 7880619-6 (Version None)
Quarter: 2011Q4

REPORT INFORMATION
  Report Type: 
  Country: None (occurrence: None)
  Receive Date: 20111101
  Receipt Date: 20111027
  Transmission Date: 20120403
  Serious: Yes (Hospitalization)
  Sender: FDA-Public Use
  Company Number: BE-ROCHE-1005116

PATIENT
  Age: 64 Year
  Sex: Female

DRUGS (11)
  1. PANTOPRAZOLE [Concomitant]
     Dates: start: 20111012
  2. LORMETAZEPAM [Concomitant]
     Dates: start: 20110602
  3. VEMURAFENIB [Suspect]
     Route: 048
     Dates: start: 20111015
  4. MOVIPREP [Concomitant]
     Dates: start: 20110602
  5. CLARITIN [Concomitant]
     Dates: start: 19960101
  6. ZOCOR [Concomitant]
     Dates: start: 19960101
  7. DURAGESIC-100 [Concomitant]
     Dates: start: 20111012
  8. ACETAMINOPHEN [Concomitant]
     Dates: start: 20110602
  9. VEMURAFENIB [Suspect]
     Indication: MALIGNANT MELANOMA
     Dosage: LAST DOSE PRIOR TO SAE: 14/OCT/2011
     Route: 048
     Dates: start: 20110722, end: 20111015
  10. FLUTICASONE PROPIONATE/SALMETEROL [Concomitant]
     Dates: start: 19960101
  11. CALCITE D [Concomitant]
     Dates: start: 20110916

REACTIONS (1)
  - ABDOMINAL PAIN UPPER [None]
